FAERS Safety Report 23994243 (Version 3)
Quarter: 2024Q2

REPORT INFORMATION
  Report Type: Spontaneous
  Country: PT (occurrence: PT)
  Receive Date: 20240620
  Receipt Date: 20240629
  Transmission Date: 20240715
  Serious: Yes (Hospitalization, Other)
  Sender: FDA-Public Use
  Company Number: PT-SA-2024SA171877

PATIENT
  Age: 14 Year
  Sex: Female
  Weight: 52.7 kg

DRUGS (3)
  1. CARBAMAZEPINE [Suspect]
     Active Substance: CARBAMAZEPINE
     Indication: Seizure
     Dosage: UNK
     Route: 065
  2. VALPROIC ACID [Suspect]
     Active Substance: VALPROIC ACID
     Indication: Seizure
     Dosage: 100 MILLIGRAM, TWO TIMES A DAY,100 MG, BID
     Route: 065
     Dates: end: 2017
  3. VALPROIC ACID [Suspect]
     Active Substance: VALPROIC ACID
     Dosage: 300 MILLIGRAM, TWO TIMES A DAY
     Route: 065
     Dates: end: 2017

REACTIONS (4)
  - Hepatic steatosis [Recovered/Resolved]
  - Drug-induced liver injury [Recovered/Resolved]
  - Myoclonus [Unknown]
  - Transaminases increased [Recovered/Resolved]

NARRATIVE: CASE EVENT DATE: 20170101
